FAERS Safety Report 10307525 (Version 1)
Quarter: 2014Q3

REPORT INFORMATION
  Report Type: Spontaneous
  Country: US (occurrence: None)
  Receive Date: 20140714
  Receipt Date: 20140714
  Transmission Date: 20150326
  Serious: Yes (Disabling)
  Sender: FDA-Public Use
  Company Number: None

PATIENT
  Age: 60 Year
  Sex: Male
  Weight: 91.63 kg

DRUGS (1)
  1. RED YEAST RICE [Suspect]
     Active Substance: DIETARY SUPPLEMENT
     Indication: BLOOD CHOLESTEROL INCREASED
     Dosage: 1 DOSE TWICE DAILY TAKEN BY MOUTH
     Route: 048
     Dates: start: 20140525, end: 20140703

REACTIONS (7)
  - Arthralgia [None]
  - Myalgia [None]
  - Gait disturbance [None]
  - Activities of daily living impaired [None]
  - Pain in extremity [None]
  - Product quality issue [None]
  - Insomnia [None]

NARRATIVE: CASE EVENT DATE: 20140703
